FAERS Safety Report 7022605-4 (Version None)
Quarter: 2010Q3

REPORT INFORMATION
  Report Type: 
  Country: None (occurrence: None)
  Receive Date: 20100930
  Receipt Date: 20100920
  Transmission Date: 20110219
  Serious: Yes (Death, Other)
  Sender: FDA-Public Use
  Company Number: DE-PFIZER INC-2010104388

PATIENT
  Age: 55 Year
  Sex: Male

DRUGS (2)
  1. VIAGRA [Suspect]
     Dosage: UNK
  2. ALPROSTADIL [Suspect]
     Dosage: UNK

REACTIONS (4)
  - DIZZINESS [None]
  - HYPERHIDROSIS [None]
  - MYOCARDIAL INFARCTION [None]
  - OVERDOSE [None]
